FAERS Safety Report 7541010-5 (Version None)
Quarter: 2011Q2

REPORT INFORMATION
  Report Type: 
  Country: None (occurrence: None)
  Receive Date: 20110610
  Receipt Date: 20110531
  Transmission Date: 20111010
  Serious: Yes (Other)
  Sender: FDA-Public Use
  Company Number: US-ELI_LILLY_AND_COMPANY-US201005000637

PATIENT
  Sex: Male
  Weight: 104.31 kg

DRUGS (21)
  1. HYDROCHLOROTHIAZIDE [Concomitant]
     Dosage: 12.5 MG, QD
  2. BYETTA [Suspect]
     Indication: DIABETES MELLITUS
     Dosage: 10 MG, QD
     Dates: start: 20050101, end: 20071024
  3. NOVOLOG [Concomitant]
     Indication: DIABETES MELLITUS
  4. GLIPIZIDE [Concomitant]
     Indication: DIABETES MELLITUS
     Dosage: 10 MG, EACH MORNING
  5. AVANDIA [Concomitant]
     Indication: DIABETES MELLITUS
     Dosage: 8 MG, QD
  6. CYMBALTA [Concomitant]
     Indication: DEPRESSION
     Dosage: 60 MG, QD
  7. ACIPHEX [Concomitant]
     Dosage: 20 MG, QD
  8. CLARITIN-D 24 HOUR [Concomitant]
     Dosage: UNK, PRN
  9. GLIPIZIDE [Concomitant]
     Dosage: 5 MG, EACH EVENING
  10. NIASPAN [Concomitant]
     Indication: HYPERLIPIDAEMIA
     Dosage: UNK, QD
  11. ENALAPRIL MALEATE [Concomitant]
     Dosage: 20 MG, BID
  12. METFORMIN HCL [Concomitant]
     Indication: DIABETES MELLITUS
     Dosage: 1000 MG, EACH MORNING
  13. AMBIEN [Concomitant]
     Indication: INSOMNIA
     Dosage: 12.5 MG, QD
  14. NORVASC [Concomitant]
     Indication: HYPERTENSION
     Dosage: 10 MG, QD
  15. ASPIRIN [Concomitant]
     Dosage: 81 MG, QD
  16. LIPITOR [Concomitant]
     Indication: HYPERLIPIDAEMIA
     Dosage: 20 MG, QD
  17. LANTUS [Concomitant]
     Indication: DIABETES MELLITUS
  18. NITROGLYCERIN [Concomitant]
     Dosage: UNK, PRN
  19. DOXAZOSIN MESYLATE [Concomitant]
     Indication: HYPERTENSION
     Dosage: 4 MG, QD
  20. METFORMIN HCL [Concomitant]
     Dosage: 500 MG, EACH EVENING
  21. VIAGRA [Concomitant]
     Dosage: UNK, PRN

REACTIONS (6)
  - PANCREATITIS [None]
  - NEPHROPATHY [None]
  - ABDOMINAL DISCOMFORT [None]
  - RENAL FAILURE [None]
  - GASTRITIS [None]
  - OFF LABEL USE [None]
